FAERS Safety Report 26090060 (Version 1)
Quarter: 2025Q4

REPORT INFORMATION
  Report Type: Spontaneous
  Country: US (occurrence: US)
  Receive Date: 20251126
  Receipt Date: 20251126
  Transmission Date: 20260118
  Serious: No
  Sender: ROCHE
  Company Number: US-ROCHE-10000438845

PATIENT
  Sex: Female

DRUGS (9)
  1. ZELBORAF [Suspect]
     Active Substance: VEMURAFENIB
     Indication: Transaminases increased
     Dosage: TAKE 3 TABLET BY MOUTH TWICE A DAY
     Route: 048
     Dates: start: 202406
  2. COTELLIC [Concomitant]
     Active Substance: COBIMETINIB FUMARATE
     Route: 048
  3. TECENTRIQ [Concomitant]
     Active Substance: ATEZOLIZUMAB
     Dosage: 1200MG/20ML
  4. ACETAMINOPHE TAB 500MG [Concomitant]
     Route: 048
  5. CLOBAZAM TAB 10MG [Concomitant]
  6. LEVETIRACETA TAB 750MG [Concomitant]
     Route: 048
  7. METHYLPHENID TAB 5MG [Concomitant]
     Route: 048
  8. VALACYCLOVIR TAB 500MG [Concomitant]
     Route: 048
  9. ZELBORAF [Concomitant]
     Active Substance: VEMURAFENIB
     Route: 048

REACTIONS (2)
  - Off label use [Unknown]
  - No adverse event [Unknown]
